FAERS Safety Report 9248961 (Version 1)
Quarter: 2013Q1

REPORT INFORMATION
  Report Type: Spontaneous
  Country: US (occurrence: None)
  Receive Date: 20130305
  Receipt Date: 20130305
  Transmission Date: 20140127
  Serious: Yes (Other)
  Sender: FDA-Public Use
  Company Number: 163-21880-12091807

PATIENT
  Age: 59 Year
  Sex: Male

DRUGS (7)
  1. REVLIMID [Suspect]
     Indication: PLASMA CELL MYELOMA
     Dosage: 28 IN 28 D?? TEMPORARILY INTERRUPTED
     Route: 048
     Dates: start: 20061208
  2. ZOMETA (ZOLEDRONIC ACID) [Concomitant]
  3. BAYER ASPIRIN (ACETYLSALICYLIC ACID) [Concomitant]
  4. PERCOCET (OXYCOCET) (UNKNOWN) [Concomitant]
  5. DEXAMETHASONE (DEXAMETHASONE) (UNKNOWN) [Concomitant]
  6. OSCAL (CALCIUM CARBONATE) [Concomitant]
  7. D-3 (COLECALCIFEROL) [Concomitant]

REACTIONS (1)
  - Bronchitis [None]
